FAERS Safety Report 11200564 (Version 2)
Quarter: 2015Q3

REPORT INFORMATION
  Report Type: Spontaneous
  Country: US (occurrence: US)
  Receive Date: 20150618
  Receipt Date: 20150708
  Transmission Date: 20151125
  Serious: Yes (Hospitalization)
  Sender: FDA-Public Use
  Company Number: US-UCBSA-2015019144

PATIENT
  Sex: Male
  Weight: 88 kg

DRUGS (2)
  1. CIMZIA [Suspect]
     Active Substance: CERTOLIZUMAB PEGOL
     Indication: RHEUMATOID ARTHRITIS
  2. CIMZIA [Suspect]
     Active Substance: CERTOLIZUMAB PEGOL
     Indication: CROHN^S DISEASE
     Dosage: DOSE: 400 MG, FIRST AND ONLY INJECTION
     Route: 058
     Dates: start: 201410, end: 201410

REACTIONS (9)
  - Asthenia [Recovering/Resolving]
  - Rectal haemorrhage [Recovered/Resolved]
  - Intestinal ulcer [Recovered/Resolved]
  - Clostridium difficile infection [Recovered/Resolved]
  - Palpitations [Recovered/Resolved]
  - Intestinal polyp [Recovered/Resolved]
  - Contusion [Recovered/Resolved]
  - Dyspnoea [Recovered/Resolved]
  - Lung infection [Recovered/Resolved]

NARRATIVE: CASE EVENT DATE: 2014
